FAERS Safety Report 10155851 (Version 2)
Quarter: 2014Q2

REPORT INFORMATION
  Report Type: Spontaneous
  Country: RO (occurrence: RO)
  Receive Date: 20140506
  Receipt Date: 20140516
  Transmission Date: 20141212
  Serious: Yes (Hospitalization, Other)
  Sender: FDA-Public Use
  Company Number: RO-009507513-1404ROM015708

PATIENT
  Age: 59 Year
  Sex: Female
  Weight: 65 kg

DRUGS (4)
  1. PEGINTRON [Suspect]
     Indication: HEPATITIS C
     Dosage: 120 MICROGRAM, QW
     Route: 058
     Dates: start: 20140225, end: 20140311
  2. PEGINTRON [Suspect]
     Dosage: UNK
     Route: 058
     Dates: start: 20140415, end: 20140422
  3. REBETOL [Suspect]
     Indication: HEPATITIS C
     Dosage: TOTAL DAILY DOSAGE:1000 MCG,FREQUENCY: DAILY
     Route: 048
     Dates: start: 20140225, end: 20140311
  4. REBETOL [Suspect]
     Dosage: UNK
     Route: 048
     Dates: start: 20140415, end: 20140422

REACTIONS (6)
  - Cholecystitis [Recovered/Resolved]
  - General physical health deterioration [Recovered/Resolved]
  - Cholecystectomy [Unknown]
  - Vomiting [Not Recovered/Not Resolved]
  - Abdominal pain [Not Recovered/Not Resolved]
  - Nausea [Recovered/Resolved]
